FAERS Safety Report 9245523 (Version 1)
Quarter: 2013Q2

REPORT INFORMATION
  Report Type: Spontaneous
  Country: US (occurrence: US)
  Receive Date: 20130422
  Receipt Date: 20130422
  Transmission Date: 20140414
  Serious: Yes (Other)
  Sender: FDA-Public Use
  Company Number: US-BAYER-2013-047919

PATIENT
  Age: 41 Year
  Sex: Female

DRUGS (1)
  1. MIRENA [Suspect]
     Indication: CONTRACEPTION
     Dosage: 20 MCG/24HR, CONT
     Route: 015
     Dates: start: 20120611, end: 201302

REACTIONS (8)
  - Syncope [None]
  - Menorrhagia [Not Recovered/Not Resolved]
  - Dizziness [None]
  - Depression [None]
  - Amenorrhoea [None]
  - Anxiety [None]
  - Chest pain [None]
  - Chest discomfort [None]
